FAERS Safety Report 8759740 (Version 2)
Quarter: 2012Q4

REPORT INFORMATION
  Report Type: 
  Country: US (occurrence: US)
  Receive Date: 20120829
  Receipt Date: 20120919
  Transmission Date: 20130627
  Serious: Yes (Other)
  Sender: FDA-Public Use
  Company Number: US-ASTRAZENECA-2012SE60583

PATIENT
  Age: 64 Year
  Sex: Female

DRUGS (2)
  1. PULMICORT FLEXHALER [Suspect]
     Route: 055
  2. ACCOLATE [Suspect]
     Route: 048

REACTIONS (3)
  - Breast cancer female [Unknown]
  - Asthma [Unknown]
  - Drug dose omission [Unknown]
